FAERS Safety Report 8493364-3 (Version None)
Quarter: 2012Q3

REPORT INFORMATION
  Report Type: 
  Country: None (occurrence: None)
  Receive Date: 20120706
  Receipt Date: 20120622
  Transmission Date: 20120928
  Serious: No
  Sender: FDA-Public Use
  Company Number: US-ASTRAZENECA-2012SE42610

PATIENT
  Age: 42 Year
  Sex: Female
  Weight: 73 kg

DRUGS (7)
  1. NASONEX [Concomitant]
  2. LEVAQUIN [Interacting]
     Route: 065
     Dates: end: 20120620
  3. WARFARIN SODIUM [Concomitant]
     Indication: BLOOD DISORDER
  4. NEXIUM [Suspect]
     Indication: GASTROOESOPHAGEAL REFLUX DISEASE
     Route: 048
  5. PROBIOTIC [Concomitant]
  6. THEOPHYLLINE [Concomitant]
     Indication: ASTHMA
  7. LOSARTAN POTASSIUM [Concomitant]
     Indication: HYPERTENSION

REACTIONS (5)
  - DRUG INTERACTION [None]
  - RASH [None]
  - TREMOR [None]
  - DRUG DOSE OMISSION [None]
  - RASH GENERALISED [None]
